FAERS Safety Report 9788530 (Version 1)
Quarter: 2013Q4

REPORT INFORMATION
  Report Type: Spontaneous
  Country: IT (occurrence: IT)
  Receive Date: 20131230
  Receipt Date: 20131230
  Transmission Date: 20140711
  Serious: Yes (Other)
  Sender: FDA-Public Use
  Company Number: IT-TEVA-453544ISR

PATIENT
  Age: 11 Year
  Sex: Male

DRUGS (1)
  1. ANASTROZOLE [Suspect]
     Indication: GYNAECOMASTIA
     Route: 065

REACTIONS (1)
  - Growth retardation [Unknown]
